FAERS Safety Report 5969554-8 (Version None)
Quarter: 2008Q4

REPORT INFORMATION
  Report Type: 
  Country: None (occurrence: None)
  Receive Date: 20081126
  Receipt Date: 20081120
  Transmission Date: 20090506
  Serious: Yes (Hospitalization)
  Sender: FDA-Public Use
  Company Number: JP-GENENTECH-267906

PATIENT
  Sex: Male

DRUGS (6)
  1. RITUXAN [Suspect]
     Indication: LYMPHOMA
     Dosage: 640 MG, UNK
     Route: 042
     Dates: start: 20080623
  2. ADRIAMYCIN PFS [Suspect]
     Indication: LYMPHOMA
     Dosage: 85 MG, UNK
     Route: 042
     Dates: start: 20080526
  3. CYCLOPHOSPHAMIDE [Suspect]
     Indication: LYMPHOMA
     Dosage: 1300 MG, UNK
     Route: 042
     Dates: start: 20080526
  4. ONCOVIN [Suspect]
     Indication: LYMPHOMA
     Dosage: 2 MG, UNK
     Route: 042
     Dates: start: 20080526
  5. PREDNISONE TAB [Suspect]
     Indication: LYMPHOMA
     Dosage: 80 MG, UNK
     Route: 048
     Dates: start: 20080515
  6. CONCOMITANT DRUG [Concomitant]
     Indication: DRUG USE FOR UNKNOWN INDICATION

REACTIONS (3)
  - LIVER DISORDER [None]
  - NEUTROPHIL COUNT DECREASED [None]
  - WHITE BLOOD CELL COUNT DECREASED [None]
